FAERS Safety Report 6740225-3 (Version None)
Quarter: 2010Q2

REPORT INFORMATION
  Report Type: 
  Country: None (occurrence: None)
  Receive Date: 20100525
  Receipt Date: 20100518
  Transmission Date: 20101027
  Serious: Yes (Other)
  Sender: FDA-Public Use
  Company Number: B0652782A

PATIENT
  Age: 42 Year
  Sex: Female

DRUGS (1)
  1. ESKAZOLE [Suspect]
     Indication: TOXOCARIASIS
     Route: 048

REACTIONS (1)
  - TRANSAMINASES INCREASED [None]
